FAERS Safety Report 23451145 (Version 4)
Quarter: 2024Q2

REPORT INFORMATION
  Report Type: Spontaneous
  Country: US (occurrence: US)
  Receive Date: 20240129
  Receipt Date: 20240503
  Transmission Date: 20240716
  Serious: Yes (Other)
  Sender: FDA-Public Use
  Company Number: US-PFIZER INC-2020253194

PATIENT
  Age: 43 Year
  Sex: Female
  Weight: 108 kg

DRUGS (8)
  1. PREMARIN [Suspect]
     Active Substance: ESTROGENS, CONJUGATED
     Indication: Hormone replacement therapy
     Dosage: 2.5 MG, DAILY
     Route: 048
  2. PREMARIN [Suspect]
     Active Substance: ESTROGENS, CONJUGATED
     Dosage: 2.5 MG, DAILY
     Route: 048
     Dates: start: 20200730
  3. PREMARIN [Suspect]
     Active Substance: ESTROGENS, CONJUGATED
     Dosage: 2.5 MG, DAILY
     Route: 048
     Dates: start: 20210608
  4. PREMARIN [Suspect]
     Active Substance: ESTROGENS, CONJUGATED
     Dosage: 2.5 MG, DAILY
     Route: 048
     Dates: start: 20210915
  5. PREMARIN [Suspect]
     Active Substance: ESTROGENS, CONJUGATED
     Dosage: 1.25 MG, 2X/DAY
     Route: 048
     Dates: start: 20221209
  6. PREMARIN [Suspect]
     Active Substance: ESTROGENS, CONJUGATED
     Dosage: TAKE 2 TABLETS
     Route: 048
     Dates: start: 20231219
  7. PREMARIN [Suspect]
     Active Substance: ESTROGENS, CONJUGATED
     Dosage: 2.5 MG DAILY
     Route: 048
  8. PREMARIN [Concomitant]
     Active Substance: ESTROGENS, CONJUGATED
     Dosage: INSERT 1 G INTO THE VAGINA AT BEDTIME FOR 2 WEEKS THEN AS NEEDED
     Route: 067
     Dates: start: 20221209

REACTIONS (2)
  - Ankle operation [Unknown]
  - Off label use [Unknown]
